FAERS Safety Report 5248251-0 (Version None)
Quarter: 2007Q1

REPORT INFORMATION
  Report Type: 
  Country: None (occurrence: None)
  Receive Date: 20070227
  Receipt Date: 20060922
  Transmission Date: 20070707
  Serious: No
  Sender: FDA-Public Use
  Company Number: US-BRISTOL-MYERS SQUIBB COMPANY-13519400

PATIENT
  Age: 52 Year
  Sex: Female

DRUGS (5)
  1. GLUCOPHAGE [Suspect]
     Indication: DIABETES MELLITUS
     Route: 048
  2. GLUCOPHAGE [Suspect]
     Route: 048
     Dates: start: 20060201
  3. LIPITOR [Concomitant]
  4. GLUCOTROL XL [Concomitant]
  5. ZESTRIL [Concomitant]

REACTIONS (1)
  - DYSGEUSIA [None]
